FAERS Safety Report 5677615-6 (Version None)
Quarter: 2008Q1

REPORT INFORMATION
  Report Type: 
  Country: None (occurrence: None)
  Receive Date: 20080324
  Receipt Date: 20080318
  Transmission Date: 20080703
  Serious: No
  Sender: FDA-Public Use
  Company Number: US-BAXTER-2008BH002249

PATIENT
  Age: 18 Year
  Sex: Female
  Weight: 122 kg

DRUGS (25)
  1. HEPARIN SODIUM [Suspect]
     Indication: CYSTITIS INTERSTITIAL
     Route: 043
     Dates: start: 20061001
  2. HEPARIN SODIUM [Suspect]
     Route: 043
     Dates: start: 20061001
  3. HEPARIN SODIUM [Suspect]
     Route: 043
     Dates: start: 20061001
  4. HEPARIN SODIUM [Suspect]
     Route: 043
     Dates: start: 20061001
  5. PYRIDIUM PLUS [Concomitant]
     Indication: CYSTITIS INTERSTITIAL
     Dosage: DOSE UNIT:UNKNOWN
     Route: 048
  6. ZOFRAN [Concomitant]
     Indication: NAUSEA
     Route: 048
  7. LASIX [Concomitant]
     Indication: HYPERTENSION
     Route: 048
  8. HYDROCODONE BITARTRATE [Concomitant]
     Indication: PAIN
     Route: 048
  9. NORETHINDRONE [Concomitant]
     Indication: POLYCYSTIC OVARIES
     Route: 048
  10. ADDERALL 10 [Concomitant]
     Indication: ATTENTION DEFICIT/HYPERACTIVITY DISORDER
     Route: 048
  11. DESOXYN [Concomitant]
     Indication: ATTENTION DEFICIT/HYPERACTIVITY DISORDER
     Route: 048
  12. SINGULAIR [Concomitant]
     Indication: CYSTITIS INTERSTITIAL
     Route: 048
  13. METFORMIN [Concomitant]
     Indication: POLYCYSTIC OVARIES
     Route: 048
  14. VISTARIL [Concomitant]
     Indication: CYSTITIS INTERSTITIAL
     Route: 048
  15. PROVIGIL [Concomitant]
     Indication: SLEEP APNOEA SYNDROME
     Route: 048
  16. AMBIEN [Concomitant]
     Indication: INSOMNIA
     Route: 048
  17. ZOFRAN [Concomitant]
     Indication: VOMITING
     Route: 048
  18. LODRANE LD [Concomitant]
     Indication: EAR INFECTION
     Route: 048
  19. ZANAFLEX [Concomitant]
     Indication: MUSCLE SPASMS
     Route: 048
  20. PYRIDIUM [Concomitant]
     Indication: CYSTITIS INTERSTITIAL
     Route: 048
  21. CYTOTEC [Concomitant]
     Indication: CYSTITIS INTERSTITIAL
     Route: 048
  22. ADVAIR DISKUS 100/50 [Concomitant]
     Indication: ASTHMA
     Route: 055
  23. LIDODERM [Concomitant]
     Indication: PAIN
     Route: 065
  24. RESTASIS [Concomitant]
     Indication: DRY EYE
     Route: 065
  25. MICARDIS [Concomitant]
     Indication: TACHYCARDIA
     Route: 048

REACTIONS (4)
  - BLADDER PAIN [None]
  - CONTUSION [None]
  - HAEMORRHAGIC DIATHESIS [None]
  - TACHYCARDIA [None]
